FAERS Safety Report 21159974 (Version 1)
Quarter: 2022Q3

REPORT INFORMATION
  Report Type: Report from Study
  Country: US (occurrence: US)
  Receive Date: 20220802
  Receipt Date: 20220802
  Transmission Date: 20221026
  Serious: Yes (Other)
  Sender: FDA-Public Use
  Company Number: US-BAYER-2022A085829

PATIENT
  Age: 32 Year
  Sex: Female

DRUGS (2)
  1. ADEMPAS [Suspect]
     Active Substance: RIOCIGUAT
     Indication: Pulmonary arterial hypertension
     Dosage: UNK
  2. ADEMPAS [Suspect]
     Active Substance: RIOCIGUAT
     Indication: Pulmonary arterial hypertension
     Dosage: 1.5 MG, TID
     Route: 048
     Dates: start: 20220201

REACTIONS (5)
  - Loss of consciousness [None]
  - Flushing [None]
  - Nausea [Not Recovered/Not Resolved]
  - Headache [None]
  - Muscle spasms [None]

NARRATIVE: CASE EVENT DATE: 20220510
